FAERS Safety Report 23125763 (Version 3)
Quarter: 2025Q4

REPORT INFORMATION
  Report Type: Spontaneous
  Country: JP (occurrence: JP)
  Receive Date: 20231030
  Receipt Date: 20251222
  Transmission Date: 20260117
  Serious: Yes (Other)
  Sender: ALEXION PHARMACEUTICALS
  Company Number: 2023A243768

PATIENT
  Age: 76 Year
  Sex: Male

DRUGS (5)
  1. IMFINZI [Suspect]
     Active Substance: DURVALUMAB
     Indication: Small cell lung cancer
     Dosage: EVERY THREE WEEKS
  2. IMFINZI [Suspect]
     Active Substance: DURVALUMAB
     Dosage: EVERY FOUR WEEKS
  3. CARBOPLATIN [Concomitant]
     Active Substance: CARBOPLATIN
     Indication: Small cell lung cancer
     Dosage: EVERY 3RD DAY
  4. ETOPOSIDE [Concomitant]
     Active Substance: ETOPOSIDE
     Indication: Small cell lung cancer
     Dosage: DOSE UNKNOWN, ON DAYS 1, 2, AND 3 OF EACH CYCLE
  5. AMRUBICIN HYDROCHLORIDE [Concomitant]
     Active Substance: AMRUBICIN HYDROCHLORIDE
     Indication: Small cell lung cancer
     Dosage: DOSE UNKNOWN

REACTIONS (1)
  - Acute promyelocytic leukaemia [Unknown]
